FAERS Safety Report 17030377 (Version 1)
Quarter: 2019Q4

REPORT INFORMATION
  Report Type: Spontaneous
  Country: US (occurrence: US)
  Receive Date: 20191113
  Receipt Date: 20191113
  Transmission Date: 20200122
  Serious: Yes (Other)
  Sender: FDA-Public Use
  Company Number: None

PATIENT
  Age: 27 Year
  Sex: Female
  Weight: 127.01 kg

DRUGS (1)
  1. NEXPLANON [Suspect]
     Active Substance: ETONOGESTREL

REACTIONS (5)
  - Amenorrhoea [None]
  - Implant site bruising [None]
  - Implant site abscess [None]
  - Implant site infection [None]
  - Vaginal haemorrhage [None]

NARRATIVE: CASE EVENT DATE: 20190826
